FAERS Safety Report 20886707 (Version 2)
Quarter: 2022Q2

REPORT INFORMATION
  Report Type: Report from Study
  Country: CA (occurrence: CA)
  Receive Date: 20220528
  Receipt Date: 20220628
  Transmission Date: 20220721
  Serious: Yes (Hospitalization, Other)
  Sender: FDA-Public Use
  Company Number: CA-ABBVIE-22K-028-4414152-00

PATIENT
  Age: 74 Year
  Sex: Female
  Weight: 113.6 kg

DRUGS (8)
  1. VENCLEXTA [Suspect]
     Active Substance: VENETOCLAX
     Indication: Acute myeloid leukaemia
     Route: 048
     Dates: start: 20220520, end: 20220520
  2. VENCLEXTA [Suspect]
     Active Substance: VENETOCLAX
     Route: 048
     Dates: start: 20220521, end: 20220521
  3. VENCLEXTA [Suspect]
     Active Substance: VENETOCLAX
     Route: 048
     Dates: start: 20220522, end: 20220522
  4. VENCLEXTA [Suspect]
     Active Substance: VENETOCLAX
     Route: 048
     Dates: start: 20220523, end: 20220523
  5. VENCLEXTA [Suspect]
     Active Substance: VENETOCLAX
     Route: 048
     Dates: start: 20220608, end: 20220608
  6. VENCLEXTA [Suspect]
     Active Substance: VENETOCLAX
     Route: 048
     Dates: start: 20220609
  7. FRAGMIN [Concomitant]
     Active Substance: DALTEPARIN SODIUM
     Indication: Atrial fibrillation
     Route: 058
     Dates: start: 20220519, end: 20220523
  8. FRAGMIN [Concomitant]
     Active Substance: DALTEPARIN SODIUM
     Indication: Cardiac disorder

REACTIONS (12)
  - Internal haemorrhage [Recovered/Resolved]
  - Intra-abdominal haemorrhage [Unknown]
  - Unevaluable event [Recovered/Resolved]
  - Infusion site extravasation [Unknown]
  - Contusion [Unknown]
  - Lung consolidation [Unknown]
  - Pleural effusion [Unknown]
  - Gastric disorder [Unknown]
  - Lithiasis [Unknown]
  - Calcinosis [Unknown]
  - Haemoglobin decreased [Unknown]
  - Abdominal pain [Unknown]

NARRATIVE: CASE EVENT DATE: 20220523
